FAERS Safety Report 20921305 (Version 1)
Quarter: 2022Q2

REPORT INFORMATION
  Report Type: Spontaneous
  Country: IT (occurrence: IT)
  Receive Date: 20220606
  Receipt Date: 20220606
  Transmission Date: 20220721
  Serious: Yes (Hospitalization)
  Sender: FDA-Public Use
  Company Number: IT-TEVA-2022-IT-2043522

PATIENT
  Age: 34 Year
  Sex: Female

DRUGS (16)
  1. AMIKACIN [Suspect]
     Active Substance: AMIKACIN
     Indication: Mycobacterium abscessus infection
     Dosage: 500 MILLIGRAM DAILY;
     Route: 042
     Dates: start: 202102
  2. AMIKACIN [Suspect]
     Active Substance: AMIKACIN
     Dosage: THREE TIMES WEEKLY.
     Route: 042
  3. AZITHROMYCIN [Suspect]
     Active Substance: AZITHROMYCIN
     Indication: Mycobacterium abscessus infection
     Dosage: 500 MILLIGRAM DAILY;
     Route: 048
     Dates: start: 202102
  4. MYCOPHENOLATE MOFETIL [Suspect]
     Active Substance: MYCOPHENOLATE MOFETIL
     Indication: Chronic graft versus host disease in lung
     Route: 065
  5. PREDNISONE [Suspect]
     Active Substance: PREDNISONE
     Indication: Chronic graft versus host disease in lung
     Dosage: 20 MILLIGRAM DAILY;
     Route: 065
     Dates: start: 202012
  6. RAPAMYCIN [Suspect]
     Active Substance: SIROLIMUS
     Indication: Chronic graft versus host disease in lung
     Dosage: 1 MILLIGRAM DAILY;
     Route: 065
  7. CLOFAZIMINE [Suspect]
     Active Substance: CLOFAZIMINE
     Indication: Mycobacterium abscessus infection
     Dosage: 100 MILLIGRAM DAILY;
     Route: 048
     Dates: start: 202102
  8. LINEZOLID [Suspect]
     Active Substance: LINEZOLID
     Indication: Mycobacterium abscessus infection
     Dosage: 1200 MILLIGRAM DAILY;
     Route: 042
     Dates: start: 202102
  9. LINEZOLID [Suspect]
     Active Substance: LINEZOLID
     Dosage: 600 MILLIGRAM DAILY;
     Route: 048
  10. ACYCLOVIR [Concomitant]
     Active Substance: ACYCLOVIR
     Indication: Prophylaxis
     Dosage: 400 MILLIGRAM DAILY;
     Route: 065
  11. FLUCONAZOLE [Concomitant]
     Active Substance: FLUCONAZOLE
     Indication: Prophylaxis
     Dosage: 200 MILLIGRAM DAILY;
     Route: 065
  12. SULFAMETHOXAZOLE\TRIMETHOPRIM [Concomitant]
     Active Substance: SULFAMETHOXAZOLE\TRIMETHOPRIM
     Indication: Prophylaxis
     Dosage: TRIMETHOPRIM 80 MG AND SULFAMETHOXAZOLE 400 MG THRICE WEEKLY
     Route: 065
  13. POSACONAZOLE [Concomitant]
     Active Substance: POSACONAZOLE
     Indication: Prophylaxis
     Dosage: 300 MILLIGRAM DAILY;
     Route: 048
  14. IMIPENEM [Concomitant]
     Active Substance: IMIPENEM
     Indication: Mycobacterium abscessus infection
     Dosage: 1500 MILLIGRAM DAILY; THREE TIMES DAILY
     Route: 042
     Dates: start: 202102
  15. TIGECYCLINE [Concomitant]
     Active Substance: TIGECYCLINE
     Indication: Mycobacterium abscessus infection
     Dosage: 100 MILLIGRAM DAILY;
     Route: 042
     Dates: start: 202102
  16. TIGECYCLINE [Concomitant]
     Active Substance: TIGECYCLINE
     Dosage: LOADING DOSE
     Route: 065

REACTIONS (2)
  - Mycobacterium abscessus infection [Not Recovered/Not Resolved]
  - Drug ineffective [Unknown]
